FAERS Safety Report 5089827-3 (Version None)
Quarter: 2006Q3

REPORT INFORMATION
  Report Type: 
  Country: None (occurrence: None)
  Receive Date: 20060825
  Receipt Date: 20060529
  Transmission Date: 20061208
  Serious: Yes (Other)
  Sender: FDA-Public Use
  Company Number: PHNU2006DE02112

PATIENT
  Sex: Male

DRUGS (2)
  1. GLEEVEC [Suspect]
     Route: 048
     Dates: end: 20060501
  2. GLEEVEC [Suspect]
     Dosage: 400 MG, QD
     Route: 048
     Dates: start: 20060501

REACTIONS (3)
  - HAEMATURIA [None]
  - NEOPLASM MALIGNANT [None]
  - PENIS CARCINOMA [None]
